FAERS Safety Report 18186248 (Version 4)
Quarter: 2020Q4

REPORT INFORMATION
  Report Type: Report from Study
  Country: US (occurrence: US)
  Receive Date: 20200824
  Receipt Date: 20201113
  Transmission Date: 20210113
  Serious: Yes (Hospitalization)
  Sender: FDA-Public Use
  Company Number: NVSC2020US228146

PATIENT
  Age: 76 Year
  Sex: Female
  Weight: 68.6 kg

DRUGS (2)
  1. NAB PACLITAXEL [Suspect]
     Active Substance: PACLITAXEL
     Indication: BREAST CANCER
     Dosage: 180 MG, DAILY
     Route: 042
     Dates: start: 20200717, end: 20200808
  2. PIQRAY [Suspect]
     Active Substance: ALPELISIB
     Indication: BREAST CANCER
     Dosage: 300 MG, PO DAILY
     Route: 048
     Dates: start: 20200717, end: 20200806

REACTIONS (5)
  - Pyrexia [Unknown]
  - Mucosal inflammation [Recovering/Resolving]
  - Rash [Unknown]
  - Pneumonia [Unknown]
  - Diarrhoea [Unknown]

NARRATIVE: CASE EVENT DATE: 20200810
